FAERS Safety Report 21106002 (Version 1)
Quarter: 2022Q3

REPORT INFORMATION
  Report Type: Spontaneous
  Country: US (occurrence: None)
  Receive Date: 20220720
  Receipt Date: 20220720
  Transmission Date: 20221026
  Serious: Yes (unspecified)
  Sender: FDA-Public Use
  Company Number: None

PATIENT
  Age: 34 Year
  Sex: Female
  Weight: 95.4 kg

DRUGS (1)
  1. CITROMA MAGNESIUM CITRATE [Suspect]
     Active Substance: MAGNESIUM CITRATE
     Indication: Constipation
     Dosage: OTHER QUANTITY : 1 BOTTLE;?FREQUENCY : DAILY;?
     Route: 048
     Dates: start: 20220617, end: 20220617

REACTIONS (8)
  - Hypersensitivity [None]
  - Eye swelling [None]
  - Swelling face [None]
  - Rash [None]
  - Nausea [None]
  - Fear [None]
  - Skin exfoliation [None]
  - Product complaint [None]

NARRATIVE: CASE EVENT DATE: 20220618
